FAERS Safety Report 7432130-4 (Version None)
Quarter: 2011Q2

REPORT INFORMATION
  Report Type: 
  Country: None (occurrence: None)
  Receive Date: 20110422
  Receipt Date: 20110405
  Transmission Date: 20111010
  Serious: No
  Sender: FDA-Public Use
  Company Number: US-B.I. PHARMACEUTICALS,INC./RIDGEFIELD-2011-BP-10083BP

PATIENT
  Sex: Female

DRUGS (5)
  1. POTASSIUM CHLORIDE [Concomitant]
     Indication: PROPHYLAXIS
     Route: 048
  2. VITAMIN D [Concomitant]
     Indication: PROPHYLAXIS
     Route: 054
  3. NEXIUM [Concomitant]
     Indication: ABDOMINAL DISCOMFORT
     Route: 048
  4. PRADAXA [Suspect]
     Indication: AORTIC VALVE DISEASE
     Dosage: 150 MG
     Route: 048
     Dates: start: 20110114
  5. SYNTHROID [Concomitant]
     Indication: THYROID DISORDER
     Route: 048

REACTIONS (5)
  - RASH [None]
  - PRURITUS [None]
  - EYE PRURITUS [None]
  - EYE IRRITATION [None]
  - PRURITUS GENERALISED [None]
